FAERS Safety Report 5142149-4 (Version None)
Quarter: 2006Q4

REPORT INFORMATION
  Report Type: 
  Country: None (occurrence: None)
  Receive Date: 20061102
  Receipt Date: 20060609
  Transmission Date: 20070319
  Serious: Yes (Hospitalization, Congenital Anomaly)
  Sender: FDA-Public Use
  Company Number: US-AMGEN-US182540

PATIENT
  Sex: Male

DRUGS (16)
  1. ENBREL [Suspect]
     Indication: RHEUMATOID ARTHRITIS
     Route: 064
     Dates: start: 20050830, end: 20060418
  2. ASPIRIN [Concomitant]
     Route: 064
     Dates: start: 20050830, end: 20060418
  3. PRENATAL VITAMINS [Concomitant]
     Route: 064
     Dates: start: 20050830, end: 20060418
  4. NAPROXEN [Concomitant]
     Route: 064
     Dates: start: 20050830, end: 20060418
  5. PREDNISONE TAB [Concomitant]
     Route: 064
     Dates: start: 20050830, end: 20060418
  6. ASCORBIC ACID [Concomitant]
     Route: 064
     Dates: start: 20050830, end: 20060418
  7. IRON [Concomitant]
     Route: 064
     Dates: start: 20050830, end: 20060418
  8. AMPICILLIN SODIUM [Concomitant]
     Route: 064
     Dates: start: 20051024, end: 20051031
  9. CALCIUM WITH VITAMIN D [Concomitant]
     Route: 064
     Dates: start: 20051228, end: 20060418
  10. FISH OIL [Concomitant]
     Route: 064
     Dates: start: 20051206, end: 20060131
  11. INFLUENZA VACCINE [Concomitant]
     Route: 064
     Dates: start: 20051107, end: 20051107
  12. LOPERAMIDE [Concomitant]
     Route: 064
     Dates: start: 20051118, end: 20051119
  13. PENICILLIN G [Concomitant]
     Route: 064
     Dates: start: 20060125, end: 20060130
  14. RANITIDINE [Concomitant]
     Route: 064
     Dates: start: 20050815, end: 20060418
  15. TYLENOL [Concomitant]
     Route: 064
     Dates: start: 20060329, end: 20060331
  16. TUMS [Concomitant]
     Route: 064
     Dates: start: 20060329, end: 20060330

REACTIONS (2)
  - CONGENITAL GASTRIC ANOMALY [None]
  - PREMATURE BABY [None]
